FAERS Safety Report 18543212 (Version 1)
Quarter: 2020Q4

REPORT INFORMATION
  Report Type: Spontaneous
  Country: US (occurrence: US)
  Receive Date: 20201125
  Receipt Date: 20201125
  Transmission Date: 20210114
  Serious: No
  Sender: FDA-Public Use
  Company Number: US-SA-2020SA337065

PATIENT

DRUGS (14)
  1. HYDROXYZINE [Concomitant]
     Active Substance: HYDROXYZINE HYDROCHLORIDE
  2. QVAR [Concomitant]
     Active Substance: BECLOMETHASONE DIPROPIONATE
  3. VITAMIN D3 [Concomitant]
     Active Substance: CHOLECALCIFEROL
  4. DUPIXENT [Suspect]
     Active Substance: DUPILUMAB
     Indication: DERMATITIS CONTACT
     Dosage: 300 MG, QOW
     Route: 058
     Dates: start: 20200516
  5. CENTRUM SILVER [ASCORBIC ACID;BIOTIN;BORON;CALCIUM;CALCIUM PANTOTHENAT [Concomitant]
  6. TRAMADOL. [Concomitant]
     Active Substance: TRAMADOL
  7. AMOXICILLIN. [Concomitant]
     Active Substance: AMOXICILLIN
  8. PEPCID [Concomitant]
     Active Substance: FAMOTIDINE
  9. IBUPROFEN. [Concomitant]
     Active Substance: IBUPROFEN
  10. LIPITOR [Concomitant]
     Active Substance: ATORVASTATIN CALCIUM
  11. VITAMIN B COMPLEX [Concomitant]
     Active Substance: CYANOCOBALAMIN\DEXPANTHENOL\NIACINAMIDE\PYRIDOXINE HYDROCHLORIDE\RIBOFLAVIN 5^-PHOSPHATE SODIUM\THIAMINE HYDROCHLORIDE\VITAMIN B COMPLEX
  12. LYRICA [Concomitant]
     Active Substance: PREGABALIN
  13. XYZAL [Concomitant]
     Active Substance: LEVOCETIRIZINE DIHYDROCHLORIDE
  14. CITALOPRAM [CITALOPRAM HYDROCHLORIDE] [Concomitant]

REACTIONS (3)
  - Tooth fracture [Unknown]
  - Product use in unapproved indication [Unknown]
  - Toothache [Unknown]

NARRATIVE: CASE EVENT DATE: 20200516
